FAERS Safety Report 10870496 (Version 1)
Quarter: 2015Q1

REPORT INFORMATION
  Report Type: Spontaneous
  Country: US (occurrence: US)
  Receive Date: 20150226
  Receipt Date: 20150226
  Transmission Date: 20150721
  Serious: No
  Sender: FDA-Public Use
  Company Number: US-TEVA-480432USA

PATIENT
  Sex: Male

DRUGS (1)
  1. AMPHETAMINE W/DEXTROAMPHETAMINE [Suspect]
     Active Substance: AMPHETAMINE SULFATE\DEXTROAMPHETAMINE
     Indication: ATTENTION DEFICIT/HYPERACTIVITY DISORDER
     Dosage: 60 MILLIGRAM DAILY;

REACTIONS (7)
  - Drug effect incomplete [Unknown]
  - Drug ineffective [Unknown]
  - Appetite disorder [Unknown]
  - Decreased activity [Unknown]
  - Incorrect dose administered [Unknown]
  - Fatigue [Unknown]
  - Disturbance in attention [Unknown]
